FAERS Safety Report 9219145 (Version 1)
Quarter: 2013Q1

REPORT INFORMATION
  Report Type: Spontaneous
  Country: US (occurrence: US)
  Receive Date: 20120830
  Receipt Date: 20120830
  Transmission Date: 20140127
  Serious: Yes (Hospitalization, Other)
  Sender: FDA-Public Use
  Company Number: PHEH2012US007667

PATIENT
  Age: 66 Year
  Sex: Female
  Weight: 86.2 kg

DRUGS (7)
  1. SANDOSTATIN LAR DEPOT (OCTREOTIDE W/POLY (D L-LACTIDE-CO-GLYCOLIDE)) SUSPENSION [Suspect]
     Indication: ACROMEGALY
     Route: 030
     Dates: start: 2003
  2. ASPIRINE (ACETYLSALICYLIC ACID) [Concomitant]
  3. BENAZEPRIL (BENAZEPRIL) [Concomitant]
  4. HYDROCHLOROTHIAZIDE (HYDROCHLOROTHIAZIDE) [Concomitant]
  5. LEVOTHYROXINE (LEVOTHYROXINE) [Concomitant]
  6. METFORMIN (METFORMIN) [Concomitant]
  7. ERGOCALCIFEROL (ERGOCALCIFEROL) [Concomitant]

REACTIONS (6)
  - Pain in extremity [None]
  - Influenza like illness [None]
  - Injection site pain [None]
  - Pain [None]
  - Chills [None]
  - Headache [None]
